FAERS Safety Report 24323319 (Version 7)
Quarter: 2025Q4

REPORT INFORMATION
  Report Type: Spontaneous
  Country: US (occurrence: US)
  Receive Date: 20240916
  Receipt Date: 20251203
  Transmission Date: 20260117
  Serious: No
  Sender: PHARMING GROUP
  Company Number: US-PHARMING-PHAUS2024000786

PATIENT

DRUGS (9)
  1. RUCONEST [Suspect]
     Active Substance: CONESTAT ALFA
     Indication: Hereditary angioedema
     Dosage: 2600 IU, PRN
     Route: 042
     Dates: start: 202408
  2. RUCONEST [Suspect]
     Active Substance: CONESTAT ALFA
     Dosage: 2600 IU, PRN
     Route: 042
     Dates: start: 202408
  3. RUCONEST [Suspect]
     Active Substance: CONESTAT ALFA
     Dosage: 4200 IU, PRN
     Route: 042
     Dates: start: 202408
  4. RUCONEST [Suspect]
     Active Substance: CONESTAT ALFA
     Dosage: 4200 IU, AS NEEDED
     Route: 042
     Dates: start: 202408
  5. RUCONEST [Suspect]
     Active Substance: CONESTAT ALFA
     Dosage: 4200 IU, PRN
     Route: 042
     Dates: start: 202408
  6. RUCONEST [Suspect]
     Active Substance: CONESTAT ALFA
     Dosage: 4200 IU, AS NEEDED
     Route: 042
     Dates: start: 202408
  7. BERINERT [Concomitant]
     Active Substance: HUMAN C1-ESTERASE INHIBITOR
     Indication: Product used for unknown indication
  8. TAKHZYRO [Concomitant]
     Active Substance: LANADELUMAB-FLYO
     Indication: Product used for unknown indication
  9. EPINEPHRINE [Concomitant]
     Active Substance: EPINEPHRINE
     Indication: Product used for unknown indication

REACTIONS (2)
  - Weight fluctuation [Unknown]
  - Underdose [Unknown]
